FAERS Safety Report 10507315 (Version 2)
Quarter: 2015Q1

REPORT INFORMATION
  Report Type: Spontaneous
  Country: FR (occurrence: FR)
  Receive Date: 20141009
  Receipt Date: 20150209
  Transmission Date: 20150720
  Serious: No
  Sender: FDA-Public Use
  Company Number: 2014SP003140

PATIENT
  Age: 75 Year
  Sex: Male
  Weight: 100 kg

DRUGS (1)
  1. ALVESCO [Suspect]
     Active Substance: CICLESONIDE
     Indication: COUGH
     Route: 055
     Dates: start: 20141004, end: 20141005

REACTIONS (2)
  - Hiccups [Recovered/Resolved]
  - Off label use [None]

NARRATIVE: CASE EVENT DATE: 20141004
